FAERS Safety Report 9780497 (Version 2)
Quarter: 2013Q4

REPORT INFORMATION
  Report Type: Spontaneous
  Country: US (occurrence: US)
  Receive Date: 20131224
  Receipt Date: 20131225
  Transmission Date: 20140711
  Serious: Yes (Death)
  Sender: FDA-Public Use
  Company Number: US-ROCHE-1323094

PATIENT
  Age: 89 Year
  Sex: Female

DRUGS (2)
  1. XELODA [Suspect]
     Indication: GASTROINTESTINAL CARCINOMA
     Dosage: IN THE MORNING; 14 DAYS ON THEN 7 DAYS OFF
     Route: 048
     Dates: start: 20130725, end: 20131202
  2. XELODA [Suspect]
     Dosage: IN THE AFTERNOON; 14 DAYS ON THEN 7 DAYS OFF
     Route: 048
     Dates: start: 20130725, end: 20131202

REACTIONS (3)
  - Death [Fatal]
  - Palmar-plantar erythrodysaesthesia syndrome [Unknown]
  - Neuropathy peripheral [Unknown]
